FAERS Safety Report 8064483-0 (Version None)
Quarter: 2012Q1

REPORT INFORMATION
  Report Type: 
  Country: None (occurrence: None)
  Receive Date: 20120123
  Receipt Date: 20120118
  Transmission Date: 20120608
  Serious: Yes (Other)
  Sender: FDA-Public Use
  Company Number: DE-PFIZER INC-2012014985

PATIENT
  Age: 67 Year

DRUGS (1)
  1. VENLAFAXINE HCL [Suspect]
     Indication: DEPRESSION
     Dosage: 75 MG, 1X/DAY IN THE MORNING
     Dates: start: 20110101

REACTIONS (1)
  - MYOCARDIAL INFARCTION [None]
